FAERS Safety Report 8511297 (Version 2)
Quarter: 2013Q1

REPORT INFORMATION
  Report Type: Spontaneous
  Country: US (occurrence: US)
  Receive Date: 20120413
  Receipt Date: 20130221
  Transmission Date: 20140127
  Serious: No
  Sender: FDA-Public Use
  Company Number: US-ASTRAZENECA-2011SE78168

PATIENT
  Age: 60 Year
  Sex: Female

DRUGS (5)
  1. NEXIUM [Suspect]
     Route: 048
  2. PRILOSEC [Suspect]
     Route: 048
  3. CRESTOR [Suspect]
     Route: 048
  4. ZETIA [Concomitant]
  5. PEPCID [Concomitant]

REACTIONS (9)
  - Gastritis [Unknown]
  - Dyspepsia [Unknown]
  - Gastrooesophageal reflux disease [Unknown]
  - Fibromyalgia [Unknown]
  - Headache [Unknown]
  - Abdominal discomfort [Unknown]
  - Expired drug administered [Unknown]
  - Drug dose omission [Unknown]
  - Drug ineffective [Unknown]
